FAERS Safety Report 8789821 (Version 2)
Quarter: 2014Q3

REPORT INFORMATION
  Report Type: Spontaneous
  Country: US (occurrence: US)
  Receive Date: 20120917
  Receipt Date: 20140815
  Transmission Date: 20150326
  Serious: Yes (Hospitalization, Other)
  Sender: FDA-Public Use
  Company Number: US-009507513-2012SP028994

PATIENT
  Sex: Female
  Weight: 75.74 kg

DRUGS (1)
  1. NUVARING [Suspect]
     Active Substance: ETHINYL ESTRADIOL\ETONOGESTREL
     Indication: CONTRACEPTION
     Dosage: UNK
     Dates: start: 20100128, end: 20100616

REACTIONS (18)
  - Hypokalaemia [Unknown]
  - Haematuria [Unknown]
  - Diarrhoea [Unknown]
  - White blood cell count increased [Unknown]
  - Hydronephrosis [Unknown]
  - Pulmonary embolism [Unknown]
  - Night sweats [Unknown]
  - Chest pain [Unknown]
  - Constipation [Unknown]
  - Increased tendency to bruise [Unknown]
  - Headache [Unknown]
  - Temperature intolerance [Unknown]
  - Vision blurred [Unknown]
  - Migraine [Unknown]
  - Pulmonary infarction [Unknown]
  - Abdominal pain [Unknown]
  - Anaemia [Unknown]
  - Maxillofacial operation [Unknown]

NARRATIVE: CASE EVENT DATE: 201006
